FAERS Safety Report 11826502 (Version 1)
Quarter: 2015Q4

REPORT INFORMATION
  Report Type: Spontaneous
  Country: US (occurrence: None)
  Receive Date: 20151210
  Receipt Date: 20151210
  Transmission Date: 20160305
  Serious: No
  Sender: FDA-Public Use
  Company Number: None

PATIENT
  Age: 61 Year
  Sex: Male

DRUGS (4)
  1. TOUJEO [Concomitant]
     Active Substance: INSULIN GLARGINE
  2. BYDUREON [Concomitant]
     Active Substance: EXENATIDE
  3. METFORMIN UNKNOWN UNKNOWN [Suspect]
     Active Substance: METFORMIN HYDROCHLORIDE
  4. HUMALOG [Suspect]
     Active Substance: INSULIN LISPRO

REACTIONS (6)
  - Musculoskeletal pain [None]
  - Hypoaesthesia [None]
  - Foot amputation [None]
  - Drug ineffective [None]
  - Peripheral vascular disorder [None]
  - Blood glucose increased [None]
